FAERS Safety Report 15738345 (Version 1)
Quarter: 2018Q4

REPORT INFORMATION
  Report Type: Spontaneous
  Country: US (occurrence: US)
  Receive Date: 20181219
  Receipt Date: 20181219
  Transmission Date: 20190205
  Serious: No
  Sender: FDA-Public Use
  Company Number: US-ASTRAZENECA-2018SF53376

PATIENT
  Age: 29129 Day
  Sex: Female

DRUGS (3)
  1. BYDUREON BCISE [Suspect]
     Active Substance: EXENATIDE
     Indication: DIABETES MELLITUS
     Route: 058
     Dates: start: 20181119
  2. SYMBICORT [Suspect]
     Active Substance: BUDESONIDE\FORMOTEROL FUMARATE DIHYDRATE
     Indication: ASTHMA
     Dosage: 160-4.5MCG 2 PUFFS ONCE A DAY
     Route: 055
     Dates: start: 201802
  3. CRESTOR [Suspect]
     Active Substance: ROSUVASTATIN CALCIUM
     Route: 048

REACTIONS (4)
  - Injection site extravasation [Not Recovered/Not Resolved]
  - Fear [Unknown]
  - Eye disorder [Unknown]
  - Off label use [Unknown]

NARRATIVE: CASE EVENT DATE: 201802
